FAERS Safety Report 5892644-5 (Version None)
Quarter: 2008Q3

REPORT INFORMATION
  Report Type: 
  Country: None (occurrence: None)
  Receive Date: 20080919
  Receipt Date: 20080919
  Transmission Date: 20090109
  Serious: Yes (Hospitalization)
  Sender: FDA-Public Use
  Company Number: None

PATIENT
  Sex: Female
  Weight: 77 kg

DRUGS (6)
  1. OXALIPLATIN [Suspect]
     Dosage: 40MG/M2 QOWKX3 IV
     Route: 042
     Dates: start: 20080814
  2. OXALIPLATIN [Suspect]
     Dosage: 40MG/M2 QOWKX3 IV
     Route: 042
     Dates: start: 20080820
  3. OXALIPLATIN [Suspect]
     Dosage: 40MG/M2 QOWKX3 IV
     Route: 042
     Dates: start: 20080827
  4. AVASTIN [Suspect]
     Dosage: 5MG/KG  QWKX6 IV
     Route: 042
     Dates: start: 20080814
  5. AVASTIN [Suspect]
     Dosage: 5MG/KG  QWKX6 IV
     Route: 042
     Dates: start: 20080827
  6. FLUOROURACIL [Suspect]
     Dosage: 200MG/M2 CONT IV
     Route: 042
     Dates: start: 20080814, end: 20080829

REACTIONS (11)
  - ATRIAL FIBRILLATION [None]
  - BLOOD PHOSPHORUS DECREASED [None]
  - BLOOD POTASSIUM DECREASED [None]
  - CHILLS [None]
  - DEHYDRATION [None]
  - DIARRHOEA [None]
  - HYPOTENSION [None]
  - METABOLIC DISORDER [None]
  - SEPSIS [None]
  - SERRATIA INFECTION [None]
  - TACHYCARDIA [None]
